FAERS Safety Report 9483951 (Version 2)
Quarter: 2013Q3

REPORT INFORMATION
  Report Type: Report from Study
  Country: CH (occurrence: CH)
  Receive Date: 20130828
  Receipt Date: 20130828
  Transmission Date: 20140515
  Serious: Yes (Death)
  Sender: FDA-Public Use
  Company Number: PHHO2010CH05389

PATIENT
  Sex: Male
  Weight: 72 kg

DRUGS (7)
  1. ALISKIREN [Suspect]
     Indication: CARDIOVASCULAR DISORDER
     Route: 048
     Dates: start: 20080623
  2. METFORMIN [Concomitant]
  3. METOPROLOL [Concomitant]
  4. STARLIX [Concomitant]
  5. FELODIPINE [Concomitant]
  6. RAMIPRIL [Concomitant]
  7. SORBISTERIT-CALCIUM [Concomitant]

REACTIONS (1)
  - Cardiac disorder [Fatal]
